FAERS Safety Report 6565352-5 (Version None)
Quarter: 2010Q1

REPORT INFORMATION
  Report Type: 
  Country: None (occurrence: None)
  Receive Date: 20100201
  Receipt Date: 20100125
  Transmission Date: 20100710
  Serious: Yes (Hospitalization)
  Sender: FDA-Public Use
  Company Number: DE-TEVA-221318ISR

PATIENT
  Sex: Female
  Weight: 91 kg

DRUGS (1)
  1. GEMCITABINE [Suspect]
     Indication: LUNG ADENOCARCINOMA
     Route: 042
     Dates: start: 20100112, end: 20100112

REACTIONS (3)
  - ERYSIPELAS [None]
  - OEDEMA PERIPHERAL [None]
  - PAIN IN EXTREMITY [None]
